FAERS Safety Report 11095450 (Version 2)
Quarter: 2015Q2

REPORT INFORMATION
  Report Type: Spontaneous
  Country: US (occurrence: US)
  Receive Date: 20150506
  Receipt Date: 20150521
  Transmission Date: 20150821
  Serious: Yes (Hospitalization)
  Sender: FDA-Public Use
  Company Number: US-ACTELION-A-US2015-116118

PATIENT
  Age: 62 Year
  Sex: Male

DRUGS (3)
  1. VELETRI [Suspect]
     Active Substance: EPOPROSTENOL
     Indication: PULMONARY HYPERTENSION
     Dosage: 17 NG/KG, PER MIN
     Route: 042
     Dates: start: 20150312
  2. IMDUR [Concomitant]
     Active Substance: ISOSORBIDE MONONITRATE
  3. COUMADIN [Concomitant]
     Active Substance: WARFARIN SODIUM

REACTIONS (11)
  - Circulatory collapse [Unknown]
  - Device connection issue [Recovered/Resolved]
  - Catheter site rash [Unknown]
  - Hypersensitivity [Unknown]
  - Blister [Unknown]
  - Device breakage [Unknown]
  - Medical device change [Unknown]
  - Syncope [Unknown]
  - Secretion discharge [Unknown]
  - Pain in jaw [Unknown]
  - Device leakage [Unknown]

NARRATIVE: CASE EVENT DATE: 20150426
